FAERS Safety Report 15286282 (Version 3)
Quarter: 2019Q1

REPORT INFORMATION
  Report Type: Spontaneous
  Country: US (occurrence: US)
  Receive Date: 20180816
  Receipt Date: 20190107
  Transmission Date: 20190417
  Serious: No
  Sender: FDA-Public Use
  Company Number: US-ACLARIS THERAPEUTICS-2018US006138

PATIENT
  Sex: Female

DRUGS (2)
  1. ESKATA [Suspect]
     Active Substance: HYDROGEN PEROXIDE
     Dosage: UNK
     Route: 061
  2. ESKATA [Suspect]
     Active Substance: HYDROGEN PEROXIDE
     Indication: SEBORRHOEIC KERATOSIS
     Dosage: 1 DF, 3-4 TIMES
     Route: 061

REACTIONS (4)
  - Skin exfoliation [Unknown]
  - Hair colour changes [Unknown]
  - Product complaint [Unknown]
  - Drug ineffective [Unknown]
